FAERS Safety Report 15200970 (Version 1)
Quarter: 2018Q3

REPORT INFORMATION
  Report Type: Spontaneous
  Country: TN (occurrence: TN)
  Receive Date: 20180726
  Receipt Date: 20180726
  Transmission Date: 20181010
  Serious: Yes (Other)
  Sender: FDA-Public Use
  Company Number: TN-SUN PHARMACEUTICAL INDUSTRIES LTD-2018RR-179514

PATIENT
  Age: 29 Year
  Sex: Male

DRUGS (1)
  1. RISPERIDONE. [Suspect]
     Active Substance: RISPERIDONE
     Indication: SCHIZOPHRENIA
     Dosage: PROGRESSIVE INCREASE IN DOSAGE TO 8MG/D
     Route: 065

REACTIONS (2)
  - Thrombocytopenia [Recovered/Resolved]
  - Drug ineffective [Unknown]
